FAERS Safety Report 22246158 (Version 1)
Quarter: 2023Q2

REPORT INFORMATION
  Report Type: Spontaneous
  Country: US (occurrence: US)
  Receive Date: 20230424
  Receipt Date: 20230424
  Transmission Date: 20230721
  Serious: No
  Sender: FDA-Public Use
  Company Number: US-SA-SAC20230419000305

PATIENT
  Sex: Female

DRUGS (1)
  1. AUBAGIO [Suspect]
     Active Substance: TERIFLUNOMIDE
     Indication: Multiple sclerosis
     Dosage: 7 MG, QD
     Route: 048
     Dates: start: 202003

REACTIONS (5)
  - Muscular weakness [Unknown]
  - Dizziness [Unknown]
  - Fatigue [Unknown]
  - Dark circles under eyes [Unknown]
  - Disturbance in attention [Unknown]
